FAERS Safety Report 9322608 (Version 1)
Quarter: 2013Q2

REPORT INFORMATION
  Report Type: Spontaneous
  Country: US (occurrence: US)
  Receive Date: 20130531
  Receipt Date: 20130531
  Transmission Date: 20140414
  Serious: Yes (Hospitalization)
  Sender: FDA-Public Use
  Company Number: US-ASTRAZENECA-2013SE25269

PATIENT
  Age: 24 Year
  Sex: Female
  Weight: 117.5 kg

DRUGS (8)
  1. SEROQUEL XR [Suspect]
     Indication: MAJOR DEPRESSION
     Route: 048
     Dates: start: 20121226
  2. SEROQUEL XR [Suspect]
     Indication: MAJOR DEPRESSION
     Route: 048
  3. SEROQUEL XR [Suspect]
     Indication: MAJOR DEPRESSION
     Route: 048
     Dates: start: 20130117
  4. SEROQUEL XR [Suspect]
     Indication: MAJOR DEPRESSION
     Route: 048
     Dates: start: 20130131, end: 2013
  5. LEXAPRO [Concomitant]
     Indication: DEPRESSION
     Route: 048
  6. LEXAPRO [Concomitant]
     Indication: ANXIETY
     Route: 048
  7. WELLBUTRIN XL [Concomitant]
     Indication: DEPRESSION
     Route: 048
  8. WELLBUTRIN XL [Concomitant]
     Indication: DEPRESSION
     Route: 048

REACTIONS (4)
  - Electrocardiogram QT prolonged [Unknown]
  - Abdominal pain upper [Unknown]
  - Bradycardia [Unknown]
  - Syncope [Unknown]
